FAERS Safety Report 14635312 (Version 1)
Quarter: 2018Q1

REPORT INFORMATION
  Report Type: Spontaneous
  Country: IT (occurrence: IT)
  Receive Date: 20180314
  Receipt Date: 20180314
  Transmission Date: 20180509
  Serious: Yes (Hospitalization)
  Sender: FDA-Public Use
  Company Number: IT-PFIZER INC-2018103706

PATIENT
  Age: 43 Year
  Sex: Female

DRUGS (1)
  1. TAVOR (LORAZEPAM) [Suspect]
     Active Substance: LORAZEPAM
     Dosage: 4 DF, TOTAL
     Route: 048
     Dates: start: 20170125, end: 20170125

REACTIONS (3)
  - Sopor [Recovered/Resolved]
  - Drug abuse [Recovered/Resolved]
  - Suicide attempt [Recovered/Resolved]

NARRATIVE: CASE EVENT DATE: 20170125
